FAERS Safety Report 7652386-2 (Version None)
Quarter: 2011Q3

REPORT INFORMATION
  Report Type: 
  Country: None (occurrence: None)
  Receive Date: 20110729
  Receipt Date: 20110722
  Transmission Date: 20111222
  Serious: Yes (Other)
  Sender: FDA-Public Use
  Company Number: 2011-1914

PATIENT
  Age: 33 Year
  Sex: Female
  Weight: 61.2 kg

DRUGS (2)
  1. DYSPORT [Suspect]
     Indication: SKIN WRINKLING
     Dosage: 90 UNITS (90 UNITS, SINGLE CYCLE), UNKNOWN
     Dates: start: 20110524, end: 20110524
  2. DYSPORT [Suspect]
     Indication: OFF LABEL USE
     Dosage: 90 UNITS (90 UNITS, SINGLE CYCLE), UNKNOWN
     Dates: start: 20110524, end: 20110524

REACTIONS (3)
  - ANAPHYLACTIC REACTION [None]
  - WRONG TECHNIQUE IN DRUG USAGE PROCESS [None]
  - PRODUCT QUALITY ISSUE [None]
